FAERS Safety Report 5413652-4 (Version None)
Quarter: 2007Q3

REPORT INFORMATION
  Report Type: 
  Country: None (occurrence: None)
  Receive Date: 20070810
  Receipt Date: 20070731
  Transmission Date: 20080115
  Serious: No
  Sender: FDA-Public Use
  Company Number: 2007-162144-NL

PATIENT
  Age: 35 Year
  Sex: Female

DRUGS (1)
  1. ETONOGESTREL (BATCH #: 367207/479537) [Suspect]
     Dosage: DF SUBCUTANEOUS
     Route: 058
     Dates: start: 20030512, end: 20030904

REACTIONS (2)
  - BREAST CANCER FEMALE [None]
  - MENORRHAGIA [None]
